FAERS Safety Report 4437366-2 (Version None)
Quarter: 2004Q3

REPORT INFORMATION
  Report Type: 
  Country: None (occurrence: None)
  Receive Date: 20040726
  Receipt Date: 20040329
  Transmission Date: 20050211
  Serious: No
  Sender: FDA-Public Use
  Company Number: USA040363540

PATIENT
  Age: 74 Year
  Sex: Female

DRUGS (5)
  1. FORTEO [Suspect]
     Indication: OSTEOPOROSIS
     Dates: start: 20040307, end: 20040327
  2. MAVIK [Concomitant]
  3. LASIX [Concomitant]
  4. POTASSIUM [Concomitant]
  5. DITROPAN [Concomitant]

REACTIONS (1)
  - RENAL PAIN [None]
